FAERS Safety Report 12310887 (Version 1)
Quarter: 2016Q2

REPORT INFORMATION
  Report Type: Spontaneous
  Country: US (occurrence: US)
  Receive Date: 20160427
  Receipt Date: 20160427
  Transmission Date: 20160815
  Serious: Yes (Disabling)
  Sender: FDA-Public Use
  Company Number: US-LPDUSPRD-20160339

PATIENT
  Sex: Female

DRUGS (1)
  1. DEXFERRUM [Suspect]
     Active Substance: IRON DEXTRAN
     Dosage: DOSE UNKNOWN
     Route: 042
     Dates: start: 2001

REACTIONS (5)
  - Premature menopause [Unknown]
  - Disease progression [Unknown]
  - Hot flush [Recovered/Resolved]
  - Bedridden [Not Recovered/Not Resolved]
  - Abdominal pain [Recovered/Resolved]

NARRATIVE: CASE EVENT DATE: 2001
